FAERS Safety Report 12551588 (Version 1)
Quarter: 2016Q3

REPORT INFORMATION
  Report Type: Spontaneous
  Country: None (occurrence: None)
  Receive Date: 20160712
  Receipt Date: 20160712
  Transmission Date: 20161109
  Serious: Yes (Death)
  Sender: FDA-Public Use
  Company Number: None

PATIENT
  Age: 75 Year
  Sex: Female
  Weight: 41.3 kg

DRUGS (1)
  1. OXALIPLATIN, 20ML SAGENT [Suspect]
     Active Substance: OXALIPLATIN
     Indication: GASTRIC CANCER
     Dosage: 85 MG/M2 ONCE INTRAVENOUS DRIP
     Route: 041
     Dates: start: 20151204, end: 20160705

REACTIONS (7)
  - Respiratory rate increased [None]
  - Epistaxis [None]
  - Infusion related reaction [None]
  - Heart rate increased [None]
  - Disseminated intravascular coagulation [None]
  - Dyspnoea [None]
  - Blood pressure increased [None]

NARRATIVE: CASE EVENT DATE: 20160705
